FAERS Safety Report 7349568-6 (Version None)
Quarter: 2011Q1

REPORT INFORMATION
  Report Type: 
  Country: None (occurrence: None)
  Receive Date: 20110314
  Receipt Date: 20110304
  Transmission Date: 20110831
  Serious: Yes (Life-Threatening, Hospitalization)
  Sender: FDA-Public Use
  Company Number: FR-SANOFI-AVENTIS-2011SA013354

PATIENT
  Age: 48 Year
  Sex: Male

DRUGS (5)
  1. DILTIAZEM HYDROCHLORIDE [Suspect]
     Route: 065
  2. FLUOROURACIL [Suspect]
  3. CALCIUM FOLINATE [Suspect]
  4. OXALIPLATIN [Suspect]
  5. RAMIPRIL [Suspect]

REACTIONS (6)
  - TROPONIN T INCREASED [None]
  - CARDIAC FAILURE ACUTE [None]
  - EJECTION FRACTION ABNORMAL [None]
  - CHEST PAIN [None]
  - STRESS CARDIOMYOPATHY [None]
  - CARDIAC ARREST [None]
